FAERS Safety Report 5016612-0 (Version None)
Quarter: 2006Q2

REPORT INFORMATION
  Report Type: 
  Country: None (occurrence: None)
  Receive Date: 20060602
  Receipt Date: 20060106
  Transmission Date: 20061013
  Serious: Yes (Life-Threatening, Other)
  Sender: FDA-Public Use
  Company Number: 00205004258

PATIENT
  Age: 65 Year
  Sex: Female

DRUGS (8)
  1. AMOXIL [Suspect]
     Indication: DRUG USE FOR UNKNOWN INDICATION
     Dosage: 2G PER DAY
     Route: 048
     Dates: end: 20050815
  2. PERINDOPRIL [Suspect]
     Indication: DRUG USE FOR UNKNOWN INDICATION
     Dosage: 4MG PER DAY
     Route: 048
     Dates: end: 20050815
  3. THYROXINE SODIUM [Concomitant]
  4. ACETYLSALICYLIC ACID SRT [Concomitant]
  5. DILTIAZEM [Concomitant]
  6. CELECOXIB [Concomitant]
  7. PREMARIN [Concomitant]
  8. LIPITOR [Concomitant]

REACTIONS (1)
  - ANGIONEUROTIC OEDEMA [None]
